FAERS Safety Report 6188160-6 (Version None)
Quarter: 2009Q2

REPORT INFORMATION
  Report Type: 
  Country: None (occurrence: None)
  Receive Date: 20090513
  Receipt Date: 20081118
  Transmission Date: 20091009
  Serious: No
  Sender: FDA-Public Use
  Company Number: A0757229A

PATIENT
  Sex: Female

DRUGS (2)
  1. DYNACIRC CR [Suspect]
     Indication: DRUG USE FOR UNKNOWN INDICATION
     Route: 048
     Dates: start: 20071101
  2. OTHER MEDICATIONS [Suspect]
     Indication: DRUG USE FOR UNKNOWN INDICATION

REACTIONS (1)
  - RASH [None]
